FAERS Safety Report 8338924-5 (Version None)
Quarter: 2012Q2

REPORT INFORMATION
  Report Type: 
  Country: None (occurrence: None)
  Receive Date: 20120506
  Receipt Date: 20110615
  Transmission Date: 20120825
  Serious: Yes (Hospitalization, Other)
  Sender: FDA-Public Use
  Company Number: PHHY2011JP54828

PATIENT

DRUGS (2)
  1. LIPITOR [Concomitant]
     Dosage: UNK
     Route: 048
     Dates: end: 20110609
  2. DIOVAN [Suspect]
     Dosage: UNK
     Route: 048
     Dates: end: 20110609

REACTIONS (1)
  - BLOOD CREATINE PHOSPHOKINASE INCREASED [None]
